FAERS Safety Report 7884024-8 (Version None)
Quarter: 2011Q4

REPORT INFORMATION
  Report Type: 
  Country: None (occurrence: None)
  Receive Date: 20111102
  Receipt Date: 20111019
  Transmission Date: 20120403
  Serious: Yes (Other)
  Sender: FDA-Public Use
  Company Number: JP-SANOFI-AVENTIS-2011SA071472

PATIENT

DRUGS (2)
  1. DOCETAXEL [Suspect]
     Dosage: ON DAY 1, WITH 21 DAYS CONSTITUTING ONE COURSE
     Route: 065
  2. CAPECITABINE [Suspect]
     Dosage: ON DAY 1 TO 14, WITH 21 DAYS CONSTITUTING ONE COURSE.
     Route: 065

REACTIONS (1)
  - DELIRIUM [None]
